FAERS Safety Report 5871695-0 (Version None)
Quarter: 2008Q3

REPORT INFORMATION
  Report Type: 
  Country: None (occurrence: None)
  Receive Date: 20080902
  Receipt Date: 20060206
  Transmission Date: 20090109
  Serious: Yes (Life-Threatening)
  Sender: FDA-Public Use
  Company Number: 2008AL009351

PATIENT
  Age: 31 Year
  Sex: Female

DRUGS (1)
  1. NAPROXEN DELAYED-RELEASE TABLETS, 500 MG (PUREPAC) (NAPROXEN DELAYED-R [Suspect]
     Indication: MYALGIA
     Dosage: 500 MG;
     Dates: start: 20060117, end: 20060118

REACTIONS (2)
  - PALATAL OEDEMA [None]
  - THROAT IRRITATION [None]
